FAERS Safety Report 12852808 (Version 4)
Quarter: 2016Q4

REPORT INFORMATION
  Report Type: Spontaneous
  Country: EE (occurrence: EE)
  Receive Date: 20161017
  Receipt Date: 20161110
  Transmission Date: 20170207
  Serious: Yes (Hospitalization, Other)
  Sender: FDA-Public Use
  Company Number: EE-PFIZER INC-2016477611

PATIENT
  Age: 64 Year
  Sex: Female

DRUGS (5)
  1. SALAZOPYRIN [Suspect]
     Active Substance: SULFASALAZINE
     Indication: RHEUMATOID ARTHRITIS
     Dosage: 500 MG, 4X/DAY
     Route: 048
     Dates: end: 20160810
  2. TREXAN [Suspect]
     Active Substance: METHOTREXATE SODIUM
     Indication: RHEUMATOID ARTHRITIS
     Dosage: 10 MG, WEEKLY
     Route: 048
  3. TREXAN [Suspect]
     Active Substance: METHOTREXATE SODIUM
     Dosage: 5 MG, WEEKLY
     Route: 048
  4. SIMPONI [Suspect]
     Active Substance: GOLIMUMAB
     Indication: RHEUMATOID ARTHRITIS
     Dosage: 50 MG MONTHLY
     Route: 058
     Dates: start: 20151208, end: 20160710
  5. MEDROL [Concomitant]
     Active Substance: METHYLPREDNISOLONE
     Indication: RHEUMATOID ARTHRITIS
     Dosage: 4 MG, 2X/DAY
     Route: 048
     Dates: start: 1994

REACTIONS (6)
  - Condition aggravated [Recovering/Resolving]
  - Urinary tract infection [Unknown]
  - Renal failure [Recovering/Resolving]
  - Hydronephrosis [Recovered/Resolved]
  - Urinary bladder haemorrhage [Recovered/Resolved]
  - Nephrostomy [Recovering/Resolving]

NARRATIVE: CASE EVENT DATE: 2016
